FAERS Safety Report 15062048 (Version 1)
Quarter: 2018Q2

REPORT INFORMATION
  Report Type: Spontaneous
  Country: AT (occurrence: AT)
  Receive Date: 20180625
  Receipt Date: 20180625
  Transmission Date: 20180711
  Serious: Yes (Hospitalization, Other)
  Sender: FDA-Public Use
  Company Number: AT-009507513-1806AUT009419

PATIENT
  Age: 59 Year
  Sex: Male

DRUGS (7)
  1. CANDESARPLUS AL [Concomitant]
     Indication: PRODUCT USED FOR UNKNOWN INDICATION
     Dosage: 1 DF, DAILY
  2. THROMBO ASS [Concomitant]
     Active Substance: ASPIRIN
     Indication: PRODUCT USED FOR UNKNOWN INDICATION
     Dosage: 1 DF, UNK
  3. ATOZET 10 MG/80 MG FILMTABLETTEN [Suspect]
     Active Substance: ATORVASTATIN CALCIUM\EZETIMIBE
     Indication: CORONARY ARTERY DISEASE
     Dosage: 0-0-0-1
     Dates: end: 20180513
  4. EZETIMIBE. [Suspect]
     Active Substance: EZETIMIBE
     Dosage: 1 DF, DAILY (0-0-0-1)
     Dates: end: 20180513
  5. ATORVASTATIN CALCIUM. [Suspect]
     Active Substance: ATORVASTATIN CALCIUM
     Indication: CORONARY ARTERY DISEASE
     Dosage: 1 DF, DAILY (0-0-01)
     Dates: end: 20180513
  6. PREDNISOLONE. [Concomitant]
     Active Substance: PREDNISOLONE
     Indication: HYPERSENSITIVITY
     Dates: start: 20180502, end: 20180504
  7. XYZALL [Suspect]
     Active Substance: LEVOCETIRIZINE DIHYDROCHLORIDE
     Indication: HYPERSENSITIVITY
     Dosage: 1-0-0-0
     Dates: start: 20180502, end: 20180504

REACTIONS (1)
  - Acute hepatic failure [Recovering/Resolving]

NARRATIVE: CASE EVENT DATE: 20180512
